FAERS Safety Report 4653317-X (Version None)
Quarter: 2005Q2

REPORT INFORMATION
  Report Type: 
  Country: None (occurrence: None)
  Receive Date: 20050505
  Receipt Date: 20050428
  Transmission Date: 20051028
  Serious: Yes (Hospitalization)
  Sender: FDA-Public Use
  Company Number: 200511487FR

PATIENT
  Age: 45 Year
  Sex: Male

DRUGS (6)
  1. FLAGYL [Suspect]
     Indication: BRAIN ABSCESS
     Route: 048
     Dates: start: 20050216, end: 20050307
  2. DEPAKENE [Suspect]
     Route: 048
     Dates: start: 20041218, end: 20050307
  3. TEGRETOL [Suspect]
     Route: 048
     Dates: start: 20050202, end: 20050307
  4. THIOPHENICOL [Concomitant]
     Indication: BRAIN ABSCESS
     Route: 042
     Dates: start: 20050202, end: 20050216
  5. DALACINE [Concomitant]
     Dates: start: 20050126, end: 20050202
  6. RIVOTRIL [Concomitant]

REACTIONS (3)
  - HEPATITIS ACUTE [None]
  - HEPATOCELLULAR DAMAGE [None]
  - JAUNDICE [None]
